FAERS Safety Report 16007844 (Version 1)
Quarter: 2019Q1

REPORT INFORMATION
  Report Type: Spontaneous
  Country: EG (occurrence: EG)
  Receive Date: 20190226
  Receipt Date: 20190226
  Transmission Date: 20190418
  Serious: Yes (Other)
  Sender: FDA-Public Use
  Company Number: EG-PFIZER INC-2019079881

PATIENT
  Age: 76 Year
  Sex: Female

DRUGS (2)
  1. IBRANCE [Suspect]
     Active Substance: PALBOCICLIB
     Indication: BREAST CANCER
     Dosage: 100 MG, CYCLIC 2 WEEKS ON AND ONE WEEK OFF
  2. ARIMIDEX [Concomitant]
     Active Substance: ANASTROZOLE

REACTIONS (4)
  - Rectal haemorrhage [Recovered/Resolved]
  - Hepatic cirrhosis [Unknown]
  - Colitis [Unknown]
  - Gastritis [Unknown]
